FAERS Safety Report 8811944 (Version 1)
Quarter: 2012Q4

REPORT INFORMATION
  Report Type: 
  Country: US (occurrence: US)
  Receive Date: 20120927
  Receipt Date: 20120927
  Transmission Date: 20130627
  Serious: No
  Sender: FDA-Public Use
  Company Number: US-B.I. PHARMACEUTICALS,INC./RIDGEFIELD-2012-BP-23438BP

PATIENT
  Sex: Female
  Weight: 83 kg

DRUGS (8)
  1. SPIRIVA [Suspect]
     Indication: DYSPNOEA
     Dosage: 18 mcg
     Route: 055
     Dates: start: 201005, end: 201209
  2. VITAMIN D3 [Concomitant]
     Indication: VITAMIN SUPPLEMENTATION
     Dosage: 1000 U
     Route: 048
     Dates: start: 2007
  3. LEXAPRO [Concomitant]
     Indication: DEPRESSION
     Dosage: 10 mg
     Route: 048
     Dates: start: 2006
  4. ASPIRIN [Concomitant]
     Dosage: 81 mg
     Route: 048
     Dates: start: 2002
  5. ADVAIR [Concomitant]
     Indication: DYSPNOEA
     Route: 055
     Dates: start: 201005
  6. VITAMIN C [Concomitant]
     Indication: VITAMIN SUPPLEMENTATION
     Route: 048
     Dates: start: 2007
  7. CALCIUM WITH VITAMIN D [Concomitant]
     Indication: VITAMIN SUPPLEMENTATION
     Dosage: 1000 mg
     Route: 048
     Dates: start: 2002
  8. VITAMIN B6 [Concomitant]
     Indication: VITAMIN SUPPLEMENTATION
     Dosage: 100 mg
     Route: 048

REACTIONS (1)
  - Dyspnoea [Not Recovered/Not Resolved]
